FAERS Safety Report 5691046-4 (Version None)
Quarter: 2008Q2

REPORT INFORMATION
  Report Type: 
  Country: None (occurrence: None)
  Receive Date: 20080401
  Receipt Date: 20070328
  Transmission Date: 20081010
  Serious: Yes (Other)
  Sender: FDA-Public Use
  Company Number: US-BAYER-US-2007-011048

PATIENT

DRUGS (1)
  1. REFLUDAN [Suspect]

REACTIONS (1)
  - HAEMORRHAGE INTRACRANIAL [None]
